FAERS Safety Report 25333913 (Version 2)
Quarter: 2025Q3

REPORT INFORMATION
  Report Type: Spontaneous
  Country: US (occurrence: US)
  Receive Date: 20250520
  Receipt Date: 20250703
  Transmission Date: 20251021
  Serious: No
  Sender: NEUROCRINE BIOSCIENCES
  Company Number: US-NEUROCRINE BIOSCIENCES INC.-2025NBI05134

PATIENT
  Age: 59 Year
  Sex: Male

DRUGS (4)
  1. INGREZZA [Suspect]
     Active Substance: VALBENAZINE DITOSYLATE
     Indication: Tardive dyskinesia
     Route: 048
     Dates: start: 20250304, end: 20250318
  2. VRAYLAR [Concomitant]
     Active Substance: CARIPRAZINE
     Indication: Psychotic disorder
     Dates: start: 202001
  3. DAYVIGO [Concomitant]
     Active Substance: LEMBOREXANT
     Indication: Psychotic disorder
     Route: 065
     Dates: start: 202111
  4. ARTANE [Concomitant]
     Active Substance: TRIHEXYPHENIDYL HYDROCHLORIDE
     Route: 065
     Dates: end: 20250304

REACTIONS (1)
  - Dyspepsia [Recovered/Resolved]

NARRATIVE: CASE EVENT DATE: 20250304
